FAERS Safety Report 11045300 (Version 1)
Quarter: 2015Q2

REPORT INFORMATION
  Report Type: Spontaneous
  Country: US (occurrence: US)
  Receive Date: 20150417
  Receipt Date: 20150417
  Transmission Date: 20150821
  Serious: No
  Sender: FDA-Public Use
  Company Number: US-BAYER-2015-117128

PATIENT
  Sex: Female

DRUGS (4)
  1. LORATADINE. [Suspect]
     Active Substance: LORATADINE
     Indication: NASAL DRYNESS
     Dosage: UNK
  2. LORATADINE. [Suspect]
     Active Substance: LORATADINE
     Indication: SINUS DISORDER
     Dosage: UNK
     Route: 048
  3. LORATADINE. [Suspect]
     Active Substance: LORATADINE
     Indication: HYPERSENSITIVITY
     Dosage: UNK
  4. LORATADINE. [Suspect]
     Active Substance: LORATADINE
     Indication: HEADACHE
     Dosage: UNK

REACTIONS (1)
  - Therapeutic response unexpected [Unknown]
